FAERS Safety Report 6906810-0 (Version None)
Quarter: 2010Q3

REPORT INFORMATION
  Report Type: 
  Country: None (occurrence: None)
  Receive Date: 20100804
  Receipt Date: 20100727
  Transmission Date: 20110219
  Serious: Yes (Congenital Anomaly)
  Sender: FDA-Public Use
  Company Number: AR-B.I. PHARMACEUTICALS,INC./RIDGEFIELD-2010-BP-08484BP

PATIENT
  Sex: Male

DRUGS (12)
  1. VIRAMUNE [Suspect]
     Indication: DRUG EXPOSURE DURING PREGNANCY
     Route: 064
     Dates: start: 20050517, end: 20100529
  2. VIRAMUNE [Suspect]
     Route: 064
     Dates: start: 20050530, end: 20050804
  3. COMBIVIR [Suspect]
     Indication: DRUG EXPOSURE DURING PREGNANCY
     Route: 064
     Dates: start: 20050517, end: 20050804
  4. METRONIDAZOLE [Concomitant]
     Indication: DRUG EXPOSURE DURING PREGNANCY
     Route: 064
  5. DEXAMETHASONE [Concomitant]
     Indication: DRUG EXPOSURE DURING PREGNANCY
     Route: 064
  6. FERROUS SULFATE [Concomitant]
     Indication: DRUG EXPOSURE DURING PREGNANCY
     Route: 064
  7. FOLIC ACID [Concomitant]
     Indication: DRUG EXPOSURE DURING PREGNANCY
     Route: 064
  8. NYSTATIN [Concomitant]
     Indication: DRUG EXPOSURE DURING PREGNANCY
     Route: 064
  9. SULFAMETHOXAZOLE [Concomitant]
     Indication: DRUG EXPOSURE DURING PREGNANCY
     Route: 064
  10. TOBACCO [Concomitant]
     Indication: DRUG EXPOSURE DURING PREGNANCY
     Route: 064
  11. TOBRAMYCIN [Concomitant]
     Indication: DRUG EXPOSURE DURING PREGNANCY
     Route: 064
  12. TRIMETHOPRIM + SULFAMETHOXAZOLE [Concomitant]
     Indication: DRUG EXPOSURE DURING PREGNANCY
     Route: 064

REACTIONS (2)
  - PULMONARY ARTERY STENOSIS CONGENITAL [None]
  - UMBILICAL HERNIA [None]
